FAERS Safety Report 8759354 (Version 1)
Quarter: 2012Q4

REPORT INFORMATION
  Report Type: 
  Country: DE (occurrence: DE)
  Receive Date: 20120829
  Receipt Date: 20120829
  Transmission Date: 20130627
  Serious: Yes (Other)
  Sender: FDA-Public Use
  Company Number: DE-ASTRAZENECA-2012SE60165

PATIENT
  Age: 53 Year
  Sex: Male

DRUGS (1)
  1. PROPOFOL [Suspect]
     Indication: ENDOTRACHEAL INTUBATION
     Dosage: 20 MG/ML 1000mg, 12ml/h, 14-20Uhr
     Route: 042

REACTIONS (5)
  - Hypothermia [Recovered/Resolved]
  - Lactic acidosis [Recovered/Resolved]
  - Propofol infusion syndrome [Recovered/Resolved]
  - Bradycardia [Recovered/Resolved]
  - Hypotension [Recovered/Resolved]
